FAERS Safety Report 7714855-6 (Version None)
Quarter: 2011Q3

REPORT INFORMATION
  Report Type: 
  Country: None (occurrence: None)
  Receive Date: 20110810
  Receipt Date: 20110601
  Transmission Date: 20111222
  Serious: No
  Sender: FDA-Public Use
  Company Number: 1000021372

PATIENT
  Age: 64 Year
  Sex: Female

DRUGS (6)
  1. PERCOCET (OXYCODONE, ACETAMINOPHEN) (OXYCODONE, ACETAMINOPHEN) [Concomitant]
  2. FLEXERIL (CYCLOBENZAPRINE, HYDROCHLORIDE) 9CYCLOBENZAPRINE, HYDROCHLOR [Concomitant]
  3. PLAQUENIL (HYDROXYCHLOROQUINE) (HYDROXYCHLOROQUINE) [Concomitant]
  4. SAVELLA [Suspect]
     Indication: FIBROMYALGIA
     Dosage: 12.5 MG (12.5 MG, 1 IN 1 D), ORAL 12.5MG BID (12.5 MG, 2 IN 1 D), 25 MG BID (25 MG, 2 IN 1 D), ORAL
     Route: 048
     Dates: start: 20110526, end: 20110526
  5. SAVELLA [Suspect]
     Indication: FIBROMYALGIA
     Dosage: 12.5 MG (12.5 MG, 1 IN 1 D), ORAL 12.5MG BID (12.5 MG, 2 IN 1 D), 25 MG BID (25 MG, 2 IN 1 D), ORAL
     Route: 048
     Dates: start: 20110527, end: 20110528
  6. SAVELLA [Suspect]
     Indication: FIBROMYALGIA
     Dosage: 12.5 MG (12.5 MG, 1 IN 1 D), ORAL 12.5MG BID (12.5 MG, 2 IN 1 D), 25 MG BID (25 MG, 2 IN 1 D), ORAL
     Route: 048
     Dates: start: 20110529, end: 20110601

REACTIONS (4)
  - ASTHENIA [None]
  - DECREASED APPETITE [None]
  - HOT FLUSH [None]
  - HYPERHIDROSIS [None]
